FAERS Safety Report 4287437-9 (Version None)
Quarter: 2004Q1

REPORT INFORMATION
  Report Type: 
  Country: None (occurrence: None)
  Receive Date: 20040209
  Receipt Date: 20030626
  Transmission Date: 20041129
  Serious: No
  Sender: FDA-Public Use
  Company Number: US-GLAXOSMITHKLINE-A0414170A

PATIENT
  Age: 61 Year
  Sex: Male

DRUGS (3)
  1. PAXIL CR [Suspect]
     Indication: POST-TRAUMATIC STRESS DISORDER
     Dosage: 30MG PER DAY
     Route: 048
     Dates: start: 20020601
  2. RYTHMOL [Concomitant]
     Dosage: 900MG PER DAY
  3. VERAPAMIL [Concomitant]
     Indication: ARRHYTHMIA

REACTIONS (2)
  - INCREASED APPETITE [None]
  - WEIGHT INCREASED [None]
